FAERS Safety Report 21897662 (Version 6)
Quarter: 2023Q2

REPORT INFORMATION
  Report Type: Report from Study
  Country: GB (occurrence: GB)
  Receive Date: 20230123
  Receipt Date: 20230410
  Transmission Date: 20230721
  Serious: Yes (Hospitalization, Other)
  Sender: FDA-Public Use
  Company Number: GB-PFIZER INC-PV202300004274

PATIENT
  Age: 66 Year
  Sex: Male

DRUGS (22)
  1. EPLERENONE [Suspect]
     Active Substance: EPLERENONE
     Indication: Amyloidosis senile
     Dosage: 50 MILLIGRAM, QD (50 MG, 1X/DAY)
     Route: 048
     Dates: start: 202106
  2. EPLERENONE [Suspect]
     Active Substance: EPLERENONE
     Indication: Amyloidosis
  3. LANSOPRAZOLE [Suspect]
     Active Substance: LANSOPRAZOLE
     Indication: Angina pectoris
     Dosage: 30 MILLIGRAM, QD (30 MG, 1X/DAY)
     Route: 048
  4. BUMETANIDE [Suspect]
     Active Substance: BUMETANIDE
     Indication: Amyloidosis senile
     Dosage: 2 MILLIGRAM, BID (2 MG, 2X/DAY)
     Route: 048
     Dates: start: 202206
  5. BUMETANIDE [Suspect]
     Active Substance: BUMETANIDE
     Indication: Amyloidosis
     Dosage: 1 MILLIGRAM, QD (1MG OM)
     Route: 065
  6. RAMIPRIL [Suspect]
     Active Substance: RAMIPRIL
     Indication: Angina pectoris
     Dosage: 5 MILLIGRAM, QD (5 MG, 1X/DAY)
     Route: 048
     Dates: start: 202106
  7. ENTRESTO [Suspect]
     Active Substance: SACUBITRIL\VALSARTAN
     Indication: Product used for unknown indication
     Dosage: 103/97 MG BID
     Route: 065
  8. SACUBITRIL [Suspect]
     Active Substance: SACUBITRIL
     Indication: Amyloidosis senile
     Dosage: 48 MILLIGRAM, QD (48 MG, 1X/DAY)
     Route: 048
     Dates: start: 202106
  9. SACUBITRIL [Suspect]
     Active Substance: SACUBITRIL
     Indication: Amyloidosis
     Dosage: UNK (103/97MG BD)
     Route: 065
  10. APIXABAN [Concomitant]
     Active Substance: APIXABAN
     Indication: Anticoagulant therapy
     Dosage: 10 MILLIGRAM, QD (10 MG, 1X/DAY)
     Route: 048
     Dates: start: 20200912
  11. ATORVASTATIN [Concomitant]
     Active Substance: ATORVASTATIN
     Indication: Hypercholesterolaemia
     Dosage: 80 MILLIGRAM, QD (80 MG, 1X/DAY)
     Route: 048
  12. CHLORTHALIDONE [Concomitant]
     Active Substance: CHLORTHALIDONE
     Indication: Cardiac failure
     Dosage: 25 MILLIGRAM, BID (25 MG, 2X/DAY)
     Route: 048
     Dates: start: 202111
  13. DAPAGLIFLOZIN [Concomitant]
     Active Substance: DAPAGLIFLOZIN
     Indication: Amyloidosis senile
     Dosage: 10 MILLIGRAM, QD (10 MG, 1X/DAY)
     Route: 048
     Dates: start: 202106
  14. DAPAGLIFLOZIN [Concomitant]
     Active Substance: DAPAGLIFLOZIN
     Indication: Amyloidosis
  15. FERROUS SULFATE [Concomitant]
     Active Substance: FERROUS SULFATE
     Indication: Anaemia
     Dosage: 200 MILLIGRAM, QD (200 MG, 1X/DAY)
     Route: 048
  16. BISOPROLOL [Concomitant]
     Active Substance: BISOPROLOL
     Dosage: UNK
     Route: 065
  17. EDOXABAN [Concomitant]
     Active Substance: EDOXABAN
     Dosage: UNK
     Route: 065
  18. FOLIC ACID [Concomitant]
     Active Substance: FOLIC ACID
     Dosage: UNK
     Route: 065
  19. GLICLAZIDE [Concomitant]
     Active Substance: GLICLAZIDE
     Dosage: UNK
     Route: 065
  20. LINAGLIPTIN [Concomitant]
     Active Substance: LINAGLIPTIN
     Dosage: UNK
     Route: 065
  21. FERROUS FUMARATE [Concomitant]
     Active Substance: FERROUS FUMARATE
     Dosage: UNK
     Route: 065
  22. VENLAFAXINE [Concomitant]
     Active Substance: VENLAFAXINE HYDROCHLORIDE
     Dosage: UNK
     Route: 065

REACTIONS (2)
  - Acute kidney injury [Not Recovered/Not Resolved]
  - Off label use [Unknown]

NARRATIVE: CASE EVENT DATE: 20221124
